FAERS Safety Report 5168070-3 (Version None)
Quarter: 2006Q4

REPORT INFORMATION
  Report Type: 
  Country: None (occurrence: None)
  Receive Date: 20061208
  Receipt Date: 20060817
  Transmission Date: 20070319
  Serious: No
  Sender: FDA-Public Use
  Company Number: US-GLAXOSMITHKLINE-A0617128A

PATIENT
  Age: 50 Year
  Sex: Female

DRUGS (4)
  1. AVANDAMET [Suspect]
     Dosage: 2TAB TWICE PER DAY
     Route: 048
  2. HYZAAR [Concomitant]
  3. IBUPROFEN [Concomitant]
  4. AMBIEN [Concomitant]

REACTIONS (2)
  - ANOVULATORY CYCLE [None]
  - DRUG INEFFECTIVE [None]
